FAERS Safety Report 4528327-3 (Version None)
Quarter: 2004Q4

REPORT INFORMATION
  Report Type: 
  Country: None (occurrence: None)
  Receive Date: 20041130
  Receipt Date: 20040910
  Transmission Date: 20050328
  Serious: Yes (Disabling)
  Sender: FDA-Public Use
  Company Number: WAES 0407USA00878

PATIENT
  Age: 55 Year
  Sex: Male
  Weight: 98.4306 kg

DRUGS (5)
  1. ZETIA [Suspect]
     Indication: BLOOD CHOLESTEROL INCREASED
     Dosage: 10 MG/DAILY/ PO
     Route: 048
     Dates: start: 20040227, end: 20040525
  2. ZETIA [Suspect]
     Indication: LIPIDS INCREASED
     Dosage: 10 MG/DAILY/ PO
     Route: 048
     Dates: start: 20040227, end: 20040525
  3. LIPITOR [Concomitant]
  4. PRAVACHOL [Concomitant]
  5. ZOLOFT [Concomitant]

REACTIONS (1)
  - DIARRHOEA [None]
